FAERS Safety Report 8086939-7 (Version None)
Quarter: 2012Q1

REPORT INFORMATION
  Report Type: 
  Country: None (occurrence: None)
  Receive Date: 20120128
  Receipt Date: 20110615
  Transmission Date: 20120608
  Serious: No
  Sender: FDA-Public Use
  Company Number: US-ABBOTT-11P-163-0732594-00

PATIENT
  Age: 67 Year
  Sex: Female

DRUGS (3)
  1. HUMALOG [Concomitant]
     Indication: DIABETES MELLITUS
     Dosage: PER SLIDING SCALE
  2. INSULIN [Concomitant]
     Indication: DIABETES MELLITUS
     Dosage: AT NIGHT
  3. HUMIRA [Suspect]
     Indication: CROHN'S DISEASE
     Dosage: SECONDARY LOADING DOSE 10 JUN 2011
     Dates: start: 20110527

REACTIONS (3)
  - WHEEZING [None]
  - COUGH [None]
  - INCREASED UPPER AIRWAY SECRETION [None]
